FAERS Safety Report 9692985 (Version 1)
Quarter: 2013Q4

REPORT INFORMATION
  Report Type: Spontaneous
  Country: US (occurrence: US)
  Receive Date: 20131118
  Receipt Date: 20131118
  Transmission Date: 20140711
  Serious: Yes (Hospitalization)
  Sender: FDA-Public Use
  Company Number: US-ASTELLAS-2013US011780

PATIENT
  Age: 84 Year
  Sex: Male
  Weight: 93 kg

DRUGS (12)
  1. VESICARE [Suspect]
     Indication: PRODUCT USED FOR UNKNOWN INDICATION
     Dosage: 10 MG, UID/QD
     Route: 048
  2. TAMSULOSIN [Concomitant]
     Indication: PRODUCT USED FOR UNKNOWN INDICATION
     Dosage: 0.4 MG, UID/QD
     Route: 048
  3. ASPIRIN [Concomitant]
     Indication: CARDIAC DISORDER
     Dosage: 81 MG, UID/QD
     Route: 048
  4. GLEEVEC [Concomitant]
     Indication: NEOPLASM MALIGNANT
     Dosage: 400 MG, UID/QD
     Route: 048
  5. AMIODARONE HCL [Concomitant]
     Indication: CARDIAC DISORDER
     Dosage: 200 MG, UID/QD
     Route: 048
  6. FUROSEMIDE [Concomitant]
     Indication: FLUID RETENTION
     Dosage: 40 MG, UID/QD
     Route: 048
  7. COLACE [Concomitant]
     Indication: CONSTIPATION
     Dosage: 300 MG, UID/QD
     Route: 048
  8. NEXIUM                             /01479302/ [Concomitant]
     Indication: GASTRIC DISORDER
     Dosage: 40 MG, UID/QD
     Route: 048
  9. SENNA                              /00142201/ [Concomitant]
     Indication: CONSTIPATION
     Dosage: 2 DF, UID/QD
     Route: 048
  10. MOMETASONE FUROATE [Concomitant]
     Indication: PRODUCT USED FOR UNKNOWN INDICATION
     Dosage: UNK
     Route: 061
  11. SYNTHYROID [Concomitant]
     Indication: HYPOTHYROIDISM
     Dosage: 50 UG, UID/QD
     Route: 048
  12. FINASTERIDE [Concomitant]
     Indication: PRODUCT USED FOR UNKNOWN INDICATION
     Dosage: 5 MG, UID/QD
     Route: 048

REACTIONS (1)
  - Haematemesis [Unknown]
